FAERS Safety Report 10511678 (Version 1)
Quarter: 2014Q3

REPORT INFORMATION
  Report Type: Spontaneous
  Country: US (occurrence: None)
  Receive Date: 20140915
  Receipt Date: 20140915
  Transmission Date: 20150326
  Serious: Yes (Other)
  Sender: FDA-Public Use
  Company Number: 2014-US-000048

PATIENT
  Age: 45 Year
  Sex: Female
  Weight: 68.9 kg

DRUGS (13)
  1. XYREM [Suspect]
     Active Substance: SODIUM OXYBATE
     Indication: INSOMNIA
     Route: 048
     Dates: start: 200803, end: 2008
  2. TYLENOL [Concomitant]
     Active Substance: ACETAMINOPHEN
  3. IBUPROFEN (IBUPROFEN) [Concomitant]
     Active Substance: IBUPROFEN
  4. PROVIGIL [Concomitant]
     Active Substance: MODAFINIL
  5. SYNTHROID [Concomitant]
     Active Substance: LEVOTHYROXINE SODIUM
  6. GRALISE (GABAPENTIN) [Concomitant]
  7. LISINOPRIL (LISINOPRIL) [Concomitant]
     Active Substance: LISINOPRIL
  8. MVI (VITAMINS NOS) [Concomitant]
  9. XYREM [Suspect]
     Active Substance: SODIUM OXYBATE
     Indication: CATAPLEXY
     Route: 048
     Dates: start: 200803, end: 2008
  10. NORVASC [Suspect]
     Active Substance: AMLODIPINE BESYLATE
     Indication: BLOOD PRESSURE
  11. XYREM [Suspect]
     Active Substance: SODIUM OXYBATE
     Indication: NARCOLEPSY
     Route: 048
     Dates: start: 200803, end: 2008
  12. XYREM [Suspect]
     Active Substance: SODIUM OXYBATE
     Indication: FIBROMYALGIA
     Route: 048
     Dates: start: 200803, end: 2008
  13. ANTIBIOTICS (ANTIBIOTICS) [Concomitant]
     Active Substance: UNSPECIFIED INGREDIENT

REACTIONS (15)
  - Feeling abnormal [None]
  - Condition aggravated [None]
  - Headache [None]
  - Blood pressure fluctuation [None]
  - Off label use [None]
  - Chest pain [None]
  - Flushing [None]
  - Disturbance in attention [None]
  - Drug interaction [None]
  - Photophobia [None]
  - Polyneuropathy [None]
  - Memory impairment [None]
  - Heart rate irregular [None]
  - Oedema peripheral [None]
  - Palpitations [None]
